FAERS Safety Report 7949595-1 (Version None)
Quarter: 2011Q4

REPORT INFORMATION
  Report Type: 
  Country: None (occurrence: None)
  Receive Date: 20111130
  Receipt Date: 20111117
  Transmission Date: 20120403
  Serious: Yes (Hospitalization)
  Sender: FDA-Public Use
  Company Number: US-ASTRAZENECA-2011SE46890

PATIENT
  Age: 764 Month
  Sex: Male
  Weight: 125.6 kg

DRUGS (3)
  1. SYMBICORT [Suspect]
     Dosage: TWO PUFFS BID
     Route: 055
     Dates: start: 20080401
  2. SINGULAIR [Concomitant]
     Dosage: DAILY
     Dates: start: 20040101
  3. SYMBICORT [Suspect]
     Indication: ASTHMA
     Dosage: DAILY
     Route: 055

REACTIONS (2)
  - CHRONIC OBSTRUCTIVE PULMONARY DISEASE [None]
  - DRUG DOSE OMISSION [None]
